FAERS Safety Report 23149434 (Version 1)
Quarter: 2023Q4

REPORT INFORMATION
  Report Type: Report from Study
  Country: US (occurrence: US)
  Receive Date: 20231106
  Receipt Date: 20231106
  Transmission Date: 20240110
  Serious: Yes (Other)
  Sender: FDA-Public Use
  Company Number: US-SUN PHARMACEUTICAL INDUSTRIES LTD-2023R1-416044

PATIENT
  Sex: Female

DRUGS (1)
  1. ASPIRIN [Suspect]
     Active Substance: ASPIRIN
     Indication: Pre-eclampsia
     Dosage: UNK
     Route: 065

REACTIONS (2)
  - Inflammatory bowel disease [Unknown]
  - Exposure during pregnancy [Unknown]
